FAERS Safety Report 6411895-4 (Version None)
Quarter: 2009Q4

REPORT INFORMATION
  Report Type: 
  Country: None (occurrence: None)
  Receive Date: 20091023
  Receipt Date: 20091012
  Transmission Date: 20100525
  Serious: Yes (Other)
  Sender: FDA-Public Use
  Company Number: FR-PFIZER INC-2009281478

PATIENT

DRUGS (7)
  1. LYRICA [Suspect]
     Indication: CERVICAL ROOT PAIN
     Dosage: UNK
     Dates: start: 20090101
  2. BISOPROLOL [Concomitant]
  3. NEXIUM [Concomitant]
  4. ART 50 [Concomitant]
  5. CELEBREX [Concomitant]
  6. CONTRAMAL [Concomitant]
  7. DOLIPRANE [Concomitant]

REACTIONS (2)
  - COGNITIVE DISORDER [None]
  - HYPERTENSION [None]
